FAERS Safety Report 23543567 (Version 1)
Quarter: 2024Q1

REPORT INFORMATION
  Report Type: Spontaneous
  Country: US (occurrence: US)
  Receive Date: 20240220
  Receipt Date: 20240220
  Transmission Date: 20240410
  Serious: Yes (Life-Threatening, Hospitalization)
  Sender: FDA-Public Use
  Company Number: US-MACLEODS PHARMA EU LTD-MAC2024045907

PATIENT

DRUGS (15)
  1. CLOPIDOGREL [Interacting]
     Active Substance: CLOPIDOGREL BISULFATE
     Indication: Ischaemic stroke
     Dosage: 75 MILLIGRAM, QD
     Route: 048
  2. APIXABAN [Interacting]
     Active Substance: APIXABAN
     Indication: Atrial fibrillation
     Dosage: 5 MILLIGRAM, BID
     Route: 048
  3. APIXABAN [Interacting]
     Active Substance: APIXABAN
     Indication: Cerebrovascular accident prophylaxis
  4. DILTIAZEM [Interacting]
     Active Substance: DILTIAZEM
     Indication: Atrial fibrillation
     Dosage: 120 MILLIGRAM, QD
     Route: 048
  5. AMIODARONE [Concomitant]
     Active Substance: AMIODARONE
     Indication: Atrial fibrillation
     Dosage: 200 MILLIGRAM, BID
     Route: 048
  6. METOPROLOL TARTRATE [Concomitant]
     Active Substance: METOPROLOL TARTRATE
     Indication: Atrial fibrillation
     Dosage: 25 MILLIGRAM, BID
     Route: 048
  7. ATORVASTATIN [Concomitant]
     Active Substance: ATORVASTATIN
     Indication: Hypercholesterolaemia
     Dosage: 40 MILLIGRAM, QD
     Route: 048
  8. ATORVASTATIN [Concomitant]
     Active Substance: ATORVASTATIN
     Indication: Cerebrovascular accident prophylaxis
  9. ARIPIPRAZOLE [Concomitant]
     Active Substance: ARIPIPRAZOLE
     Indication: Affective disorder
     Dosage: 15 MILLIGRAM, QD (QAM)
     Route: 048
  10. QUETIAPINE [Concomitant]
     Active Substance: QUETIAPINE
     Indication: Affective disorder
     Dosage: 200 MILLIGRAM, QD (QHS)
     Route: 048
  11. FAMOTIDINE [Concomitant]
     Active Substance: FAMOTIDINE
     Indication: Antacid therapy
     Dosage: 40 MILLIGRAM, QD
     Route: 048
  12. RITUXIMAB-PVVR [Concomitant]
     Active Substance: RITUXIMAB-PVVR
     Indication: Thrombocytopenic purpura
     Dosage: 800 MILLIGRAM, Q.W.
     Route: 042
  13. BICTEGRAVIR\EMTRICITABINE\TENOFOVIR ALAFENAMIDE [Concomitant]
     Active Substance: BICTEGRAVIR\EMTRICITABINE\TENOFOVIR ALAFENAMIDE
     Indication: HIV infection
     Dosage: 1 DOSAGE FORM, QD
     Route: 048
  14. FOLIC ACID [Concomitant]
     Active Substance: FOLIC ACID
     Indication: Vitamin supplementation
     Dosage: 1 MILLIGRAM, QD
     Route: 048
  15. THIAMINE [Concomitant]
     Active Substance: THIAMINE
     Indication: Vitamin supplementation
     Dosage: 100 MILLIGRAM, QD
     Route: 048

REACTIONS (4)
  - Ischaemic stroke [Unknown]
  - Cerebral artery occlusion [Unknown]
  - Fall [Unknown]
  - Drug interaction [Unknown]
